FAERS Safety Report 5918693-6 (Version None)
Quarter: 2008Q4

REPORT INFORMATION
  Report Type: 
  Country: None (occurrence: None)
  Receive Date: 20081015
  Receipt Date: 20080610
  Transmission Date: 20090506
  Serious: No
  Sender: FDA-Public Use
  Company Number: US-ASTRAZENECA-2008UW11614

PATIENT
  Age: 66 Year
  Sex: Female
  Weight: 66.7 kg

DRUGS (7)
  1. SYMBICORT [Suspect]
     Indication: ASTHMA
     Dosage: 160/4.5
     Route: 055
     Dates: start: 20080501
  2. ALBUTEROL [Concomitant]
     Route: 055
  3. BENICAR [Concomitant]
  4. MULTI-VITAMINS [Concomitant]
  5. ASCORBIC ACID [Concomitant]
  6. VITAMIN B [Concomitant]
  7. VITAMIN E [Concomitant]

REACTIONS (2)
  - ABDOMINAL DISTENSION [None]
  - NASOPHARYNGITIS [None]
